FAERS Safety Report 5726727-7 (Version None)
Quarter: 2008Q2

REPORT INFORMATION
  Report Type: 
  Country: None (occurrence: None)
  Receive Date: 20080502
  Receipt Date: 20080429
  Transmission Date: 20081010
  Serious: Yes (Other)
  Sender: FDA-Public Use
  Company Number: GB-BRISTOL-MYERS SQUIBB COMPANY-14169429

PATIENT
  Age: 57 Year
  Sex: Female

DRUGS (3)
  1. PRAVASTATIN SODIUM [Suspect]
     Dosage: INITIAL DOSE 10MG FOR A YEAR AND DOSE INCREASED TO 20MG FOR 5 OR 6 MONTHS
     Route: 048
  2. ACETYLSALICYLIC ACID SRT [Concomitant]
     Dates: start: 20060501
  3. ERYTHROMYCIN [Concomitant]

REACTIONS (8)
  - ABSCESS [None]
  - ANOREXIA [None]
  - APATHY [None]
  - BACK PAIN [None]
  - MALAISE [None]
  - MUSCULOSKELETAL PAIN [None]
  - PARAESTHESIA [None]
  - TRANSIENT ISCHAEMIC ATTACK [None]
